FAERS Safety Report 9909105 (Version 1)
Quarter: 2014Q1

REPORT INFORMATION
  Report Type: Report from Study
  Country: US (occurrence: US)
  Receive Date: 20140219
  Receipt Date: 20140219
  Transmission Date: 20141002
  Serious: Yes (Hospitalization, Other)
  Sender: FDA-Public Use
  Company Number: US-PFIZER INC-2014040453

PATIENT
  Age: 65 Year
  Sex: Male

DRUGS (2)
  1. GEMCITABINE HYDROCHLORIDE [Suspect]
     Indication: PANCREATIC CARCINOMA METASTATIC
     Dosage: 800 MG/M2, WEEKLY FOR THREE CONSECUTIVE WEEKS WITH 1 WEEK OF REST, REPEATED EVERY 4 WEEKS
     Route: 042
     Dates: start: 199001
  2. GEMCITABINE HYDROCHLORIDE [Suspect]
     Dosage: 1500 MG/M2, WEEKLY FOR THREE CONSECUTIVE WEEKS WITH 1 WEEK OF REST, REPEATED EVERY 4 WEEKS
     Route: 042

REACTIONS (2)
  - Haemolytic uraemic syndrome [Recovering/Resolving]
  - Thrombotic microangiopathy [Recovering/Resolving]
